FAERS Safety Report 8729249 (Version 2)
Quarter: 2012Q4

REPORT INFORMATION
  Report Type: 
  Country: US (occurrence: US)
  Receive Date: 20120817
  Receipt Date: 20120910
  Transmission Date: 20130627
  Serious: No
  Sender: FDA-Public Use
  Company Number: US-B.I. PHARMACEUTICALS,INC./RIDGEFIELD-2012-BP-19552BP

PATIENT
  Age: 69 Year
  Sex: Female

DRUGS (5)
  1. SPIRIVA [Suspect]
     Indication: DYSPNOEA
     Dosage: 18 mcg
     Route: 055
     Dates: start: 2009
  2. CELEBREX [Concomitant]
     Indication: ARTHRITIS
     Dosage: 200 mg
     Route: 048
  3. LOSARTAN HCT [Concomitant]
     Indication: HYPERTENSION
     Route: 048
  4. NEBULIZER-COMBIVENT [Concomitant]
     Indication: DYSPNOEA
     Route: 055
  5. PROVENTIL [Concomitant]
     Indication: UNEVALUABLE EVENT
     Route: 055

REACTIONS (3)
  - Dyspnoea [Not Recovered/Not Resolved]
  - Malaise [Not Recovered/Not Resolved]
  - Unevaluable event [Not Recovered/Not Resolved]
